FAERS Safety Report 11291313 (Version 2)
Quarter: 2015Q4

REPORT INFORMATION
  Report Type: Spontaneous
  Country: US (occurrence: US)
  Receive Date: 20150722
  Receipt Date: 20151016
  Transmission Date: 20160304
  Serious: No
  Sender: FDA-Public Use
  Company Number: US-BIOGENIDEC-2015BI100063

PATIENT
  Age: 58 Year
  Sex: Male
  Weight: 100 kg

DRUGS (2)
  1. TECFIDERA [Suspect]
     Active Substance: DIMETHYL FUMARATE
     Indication: MULTIPLE SCLEROSIS
  2. AMPYRA [Concomitant]
     Active Substance: DALFAMPRIDINE
     Indication: MULTIPLE SCLEROSIS
     Dates: start: 20150527, end: 20150602

REACTIONS (7)
  - Muscular weakness [Unknown]
  - Multiple sclerosis relapse [Unknown]
  - Gait disturbance [Recovered/Resolved]
  - Mobility decreased [Unknown]
  - Malaise [Unknown]
  - Multiple sclerosis [Unknown]
  - Headache [Recovered/Resolved]
